FAERS Safety Report 6494359-1 (Version None)
Quarter: 2009Q4

REPORT INFORMATION
  Report Type: 
  Country: None (occurrence: None)
  Receive Date: 20091214
  Receipt Date: 20090211
  Transmission Date: 20100525
  Serious: No
  Sender: FDA-Public Use
  Company Number: US-BRISTOL-MYERS SQUIBB COMPANY-14502595

PATIENT
  Age: 43 Year
  Sex: Male

DRUGS (3)
  1. ABILIFY [Suspect]
     Dosage: STARTED WITH 1MG QD FOR 2 WEEKS, THEN 2MG QD FOR 2 WEEKS AND THEN 3MG QD
  2. SEROQUEL [Concomitant]
  3. LAMICTAL [Concomitant]

REACTIONS (1)
  - AKATHISIA [None]
